FAERS Safety Report 24954636 (Version 4)
Quarter: 2025Q1

REPORT INFORMATION
  Report Type: Spontaneous
  Country: JP (occurrence: JP)
  Receive Date: 20250211
  Receipt Date: 20250305
  Transmission Date: 20250409
  Serious: No
  Sender: ABBVIE
  Company Number: JP-ABBVIE-6120916

PATIENT
  Age: 36 Year
  Sex: Female

DRUGS (1)
  1. RINVOQ [Suspect]
     Active Substance: UPADACITINIB
     Indication: Crohn^s disease
     Route: 048
     Dates: start: 20250107

REACTIONS (3)
  - Anastomotic stenosis [Unknown]
  - Scar [Unknown]
  - Stenosis [Not Recovered/Not Resolved]

NARRATIVE: CASE EVENT DATE: 20250101
